FAERS Safety Report 5000320-6 (Version None)
Quarter: 2006Q2

REPORT INFORMATION
  Report Type: 
  Country: None (occurrence: None)
  Receive Date: 20060511
  Receipt Date: 20060503
  Transmission Date: 20061013
  Serious: Yes (Hospitalization)
  Sender: FDA-Public Use
  Company Number: US-MERCK-0605USA01381

PATIENT
  Age: 68 Year
  Sex: Female
  Weight: 84 kg

DRUGS (19)
  1. VIOXX [Suspect]
     Indication: ARTHRITIS
     Route: 048
     Dates: start: 20020315, end: 20040930
  2. HYDROCHLOROTHIAZIDE AND TRIAMTERENE [Concomitant]
     Route: 065
  3. PATANOL [Concomitant]
     Route: 065
  4. TRAZODONE HYDROCHLORIDE [Concomitant]
     Route: 065
  5. ZYPREXA [Concomitant]
     Route: 065
  6. ENULOSE [Concomitant]
     Route: 065
  7. PREMARIN [Concomitant]
     Route: 065
  8. DETROL LA [Concomitant]
     Route: 065
  9. FOSINOPRIL SODIUM [Concomitant]
     Route: 065
  10. SKELAXIN [Concomitant]
     Route: 065
  11. CARBATROL [Concomitant]
     Route: 065
  12. TRIMETHOBENZAMIDE HYDROCHLORIDE [Concomitant]
     Route: 065
  13. PRILOSEC [Concomitant]
     Route: 048
  14. CIPRO [Concomitant]
     Route: 065
  15. LORAZEPAN [Concomitant]
     Route: 065
  16. METOCLOPRAMIDE [Concomitant]
     Route: 065
  17. ZADITOR [Concomitant]
     Route: 065
  18. AUGMENTIN '125' [Concomitant]
     Route: 065
  19. PAXIL [Concomitant]
     Route: 065

REACTIONS (3)
  - CONFUSIONAL STATE [None]
  - ILEUS [None]
  - ISCHAEMIC STROKE [None]
